FAERS Safety Report 11966240 (Version 2)
Quarter: 2016Q1

REPORT INFORMATION
  Report Type: Report from Study
  Country: TW (occurrence: TW)
  Receive Date: 20160127
  Receipt Date: 20160129
  Transmission Date: 20160526
  Serious: Yes (Hospitalization, Other)
  Sender: FDA-Public Use
  Company Number: TW-BRISTOL-MYERS SQUIBB COMPANY-BMS-2016-003906

PATIENT
  Age: 65 Year
  Sex: Female
  Weight: 42 kg

DRUGS (5)
  1. LEUCOVORIN                         /00566701/ [Suspect]
     Active Substance: LEUCOVORIN
     Indication: COLORECTAL CANCER METASTATIC
     Dosage: 400 MG/M2, UNK
     Route: 041
     Dates: start: 20150408
  2. IRINOTECAN [Suspect]
     Active Substance: IRINOTECAN
     Indication: COLORECTAL CANCER METASTATIC
     Dosage: 150 MG/M2, UNK
     Route: 041
     Dates: start: 20150408
  3. CETUXIMAB [Suspect]
     Active Substance: CETUXIMAB
     Indication: COLORECTAL CANCER METASTATIC
     Dosage: 500 MG, UNK
     Route: 041
     Dates: start: 20150408
  4. SMECTA [Concomitant]
     Active Substance: MONTMORILLONITE
     Indication: DIARRHOEA
     Dosage: 3 G, PRN
     Route: 065
     Dates: start: 20160103, end: 20160122
  5. FLUOROURACIL. [Suspect]
     Active Substance: FLUOROURACIL
     Indication: COLORECTAL CANCER METASTATIC
     Dosage: 2400 MG/M2, UNK
     Route: 041
     Dates: start: 20150408

REACTIONS (6)
  - Pyrexia [Recovered/Resolved]
  - Malaise [Recovered/Resolved]
  - Shock [Recovered/Resolved]
  - Chills [Recovered/Resolved]
  - Decreased appetite [Recovered/Resolved]
  - Agranulocytosis [Recovered/Resolved]

NARRATIVE: CASE EVENT DATE: 20151230
